FAERS Safety Report 5333852-1 (Version None)
Quarter: 2007Q2

REPORT INFORMATION
  Report Type: 
  Country: None (occurrence: None)
  Receive Date: 20070524
  Receipt Date: 20070522
  Transmission Date: 20071010
  Serious: Yes (Death)
  Sender: FDA-Public Use
  Company Number: HQWYE622107NOV06

PATIENT
  Age: 72 Year
  Sex: Female

DRUGS (11)
  1. TYGACIL [Suspect]
     Route: 042
     Dates: start: 20061101, end: 20061104
  2. VANCOMYCIN [Concomitant]
     Indication: ABSCESS
     Dosage: UNKNOWN
  3. FLAGYL [Concomitant]
     Dosage: 500 MG EVERY 8 HOURS
     Route: 042
  4. NEULASTA [Concomitant]
  5. MICAFUNGIN SODIUM [Concomitant]
     Dosage: 150 MG DAILY
     Route: 042
  6. IMIPENEM [Concomitant]
     Dosage: UNKNOWN
  7. PROTONIX [Concomitant]
     Dosage: 40MG EVERY 24 HOURS
     Route: 042
  8. LEVOPHED [Concomitant]
     Dosage: 8 MG TITRATE
     Route: 042
  9. DOPAMINE HCL [Concomitant]
     Dosage: 800 MG AS NEEDED TITRATE
     Route: 042
  10. ZOSYN [Concomitant]
     Indication: FEBRILE NEUTROPENIA
     Dosage: UNKNOWN
  11. LEVAQUIN [Concomitant]
     Dosage: 500 MG EVERY 48 HOURS
     Route: 042

REACTIONS (1)
  - CARDIO-RESPIRATORY ARREST [None]
